FAERS Safety Report 24718796 (Version 2)
Quarter: 2024Q4

REPORT INFORMATION
  Report Type: Spontaneous
  Country: NL (occurrence: NL)
  Receive Date: 20241210
  Receipt Date: 20241211
  Transmission Date: 20250115
  Serious: Yes (Other)
  Sender: MYLAN
  Company Number: None

PATIENT
  Age: 77 Year
  Sex: Male
  Weight: 79 kg

DRUGS (3)
  1. SUNITINIB [Suspect]
     Active Substance: SUNITINIB
     Indication: Metastatic renal cell carcinoma
     Dosage: 50 MILLIGRAM, QD (1D1 - 50)
     Route: 048
     Dates: start: 20240910
  2. SUNITINIB [Suspect]
     Active Substance: SUNITINIB
     Dosage: 37.5 MILLIGRAM, QD (1D1 - TO 37.5)
     Route: 048
  3. SUNITINIB [Suspect]
     Active Substance: SUNITINIB
     Dosage: 25 MILLIGRAM, QD (1D1 - TO 25 MG)
     Route: 048
     Dates: end: 20241031

REACTIONS (2)
  - Retinal haemorrhage [Not Recovered/Not Resolved]
  - Malaise [Unknown]
